FAERS Safety Report 9991307 (Version 1)
Quarter: 2014Q1

REPORT INFORMATION
  Report Type: Spontaneous
  Country: US (occurrence: US)
  Receive Date: 20140310
  Receipt Date: 20140310
  Transmission Date: 20141002
  Serious: No
  Sender: FDA-Public Use
  Company Number: US-ABBVIE-13P-163-1132485-00

PATIENT
  Age: 28 Year
  Sex: Female
  Weight: 83.99 kg

DRUGS (4)
  1. HUMIRA [Suspect]
     Indication: ANKYLOSING SPONDYLITIS
     Dates: start: 2010, end: 20121215
  2. HUMIRA [Suspect]
     Dates: start: 2010, end: 2010
  3. PRENATAL VITAMINS [Concomitant]
     Indication: VITAMIN SUPPLEMENTATION
  4. TYLENOL [Concomitant]
     Indication: ANKYLOSING SPONDYLITIS
     Dosage: UP TO 4GM, ONE DAILY

REACTIONS (8)
  - Colitis [Recovered/Resolved]
  - Ankylosing spondylitis [Recovered/Resolved]
  - Uveitis [Not Recovered/Not Resolved]
  - Drug dose omission [Not Recovered/Not Resolved]
  - Ankylosing spondylitis [Not Recovered/Not Resolved]
  - Red blood cell sedimentation rate increased [Not Recovered/Not Resolved]
  - C-reactive protein increased [Not Recovered/Not Resolved]
  - Injection site pain [Not Recovered/Not Resolved]
